FAERS Safety Report 13237765 (Version 1)
Quarter: 2017Q1

REPORT INFORMATION
  Report Type: Spontaneous
  Country: US (occurrence: US)
  Receive Date: 20170215
  Receipt Date: 20170215
  Transmission Date: 20170428
  Serious: Yes (Other)
  Sender: FDA-Public Use
  Company Number: None

PATIENT
  Age: 61 Year
  Sex: Male
  Weight: 103.2 kg

DRUGS (2)
  1. ZOLEDRONIC [Suspect]
     Active Substance: ZOLEDRONIC ACID
     Route: 042
     Dates: start: 20160301, end: 20170125
  2. DENOSUMAB [Suspect]
     Active Substance: DENOSUMAB
     Dates: start: 20160201

REACTIONS (3)
  - Osteonecrosis of jaw [None]
  - Device breakage [None]
  - Tooth loss [None]

NARRATIVE: CASE EVENT DATE: 20170125
